FAERS Safety Report 11900679 (Version 2)
Quarter: 2016Q1

REPORT INFORMATION
  Report Type: Spontaneous
  Country: US (occurrence: US)
  Receive Date: 20160108
  Receipt Date: 20160108
  Transmission Date: 20160526
  Serious: Yes (Other)
  Sender: FDA-Public Use
  Company Number: US-TEVA-623634USA

PATIENT
  Age: 53 Year
  Sex: Female

DRUGS (3)
  1. CISPLATIN. [Suspect]
     Active Substance: CISPLATIN
     Indication: ANAL SQUAMOUS CELL CARCINOMA
     Dosage: ON DAY1
     Route: 065
  2. CETUXIMAB [Suspect]
     Active Substance: CETUXIMAB
     Indication: ANAL SQUAMOUS CELL CARCINOMA
     Dosage: ON DAY1
     Route: 065
  3. FLUOROURACIL. [Suspect]
     Active Substance: FLUOROURACIL
     Indication: ANAL SQUAMOUS CELL CARCINOMA
     Dosage: ON DAY1; CONTINUOUS INFUSION OVER 46 HOURS
     Route: 050

REACTIONS (1)
  - Mucosal inflammation [Unknown]
